FAERS Safety Report 18550422 (Version 1)
Quarter: 2020Q4

REPORT INFORMATION
  Report Type: Spontaneous
  Country: US (occurrence: US)
  Receive Date: 20201126
  Receipt Date: 20201126
  Transmission Date: 20210114
  Serious: No
  Sender: FDA-Public Use
  Company Number: US-PFIZER INC-2019246842

PATIENT
  Age: 73 Year
  Sex: Female
  Weight: 85.73 kg

DRUGS (2)
  1. REVATIO [Suspect]
     Active Substance: SILDENAFIL CITRATE
     Indication: PULMONARY EMBOLISM
     Dosage: 20 MG, 2X/DAY
     Route: 048
  2. REVATIO [Suspect]
     Active Substance: SILDENAFIL CITRATE
     Indication: PULMONARY HYPERTENSION
     Dosage: 20 MG, 3X/DAY [20 MG TABLET BY MOUTH THREE TIMES A DAY, MORNING, NOON AND NIGHT]
     Route: 048
     Dates: start: 2009

REACTIONS (5)
  - Dyspnoea [Recovering/Resolving]
  - Overwork [Unknown]
  - Product use in unapproved indication [Unknown]
  - Intentional product use issue [Unknown]
  - Off label use [Unknown]
